FAERS Safety Report 10013084 (Version 1)
Quarter: 2014Q1

REPORT INFORMATION
  Report Type: Spontaneous
  Country: US (occurrence: US)
  Receive Date: 20140314
  Receipt Date: 20140314
  Transmission Date: 20141002
  Serious: No
  Sender: FDA-Public Use
  Company Number: US-PFIZER INC-2014072793

PATIENT
  Age: 47 Year
  Sex: Female
  Weight: 62.58 kg

DRUGS (16)
  1. PREMARIN [Suspect]
     Dosage: 0.9 MG, UNK
     Route: 048
     Dates: start: 1994
  2. METHOTREXATE SODIUM [Suspect]
     Dosage: 7.5 MG, UNK
  3. PERCOCET [Concomitant]
     Dosage: 7.5/325 MG, UNK
  4. MORPHINE SULFATE ER [Concomitant]
     Dosage: 120 MG (BY TAKING FOUR TABLETS OF 30 MG EACH TOGETHER), 1X/DAY
  5. TEGRETOL [Concomitant]
     Indication: MIGRAINE
     Dosage: 200 MG, (AT BED TIME) 1X/DAY
  6. NEXIUM [Concomitant]
     Dosage: 40 MG, 1X/DAY
  7. FOLIC ACID [Concomitant]
     Dosage: 1 MG, 1X/DAY
  8. DOXYCYCLINE [Concomitant]
     Dosage: 100 MG, 1X/DAY
  9. ASPIRIN [Concomitant]
     Dosage: 81 MG, UNK
  10. LIDODERM [Concomitant]
     Dosage: UNK, (USES IT 12 HOURS ON AN 12 HOURS OFF A DAY) 1X/DAY
  11. DICYCLOMINE [Concomitant]
     Indication: ABDOMINAL PAIN UPPER
     Dosage: 10 MG, 3X/DAY
     Route: 048
  12. DICYCLOMINE [Concomitant]
     Indication: ABDOMINAL PAIN UPPER
  13. ONDANSETRON [Concomitant]
     Indication: NAUSEA
     Dosage: 4 MG, 4X/DAY
  14. ONDANSETRON [Concomitant]
     Indication: MOTION SICKNESS
  15. CYMBALTA [Concomitant]
     Indication: NERVE INJURY
     Dosage: 90 MG (BY TAKING THREE PILLS OF 30 MG EACH TOGETHER), 1X/DAY
  16. KLONOPIN [Concomitant]
     Dosage: 1 MG, AS NEEDED

REACTIONS (2)
  - Liver disorder [Recovered/Resolved]
  - Liver function test abnormal [Recovered/Resolved]
